FAERS Safety Report 9570246 (Version 1)
Quarter: 2013Q3

REPORT INFORMATION
  Report Type: Spontaneous
  Country: US (occurrence: None)
  Receive Date: 20130926
  Receipt Date: 20130926
  Transmission Date: 20140515
  Serious: Yes (Other)
  Sender: FDA-Public Use
  Company Number: None

PATIENT
  Age: 34 Year
  Sex: Female
  Weight: 58.97 kg

DRUGS (1)
  1. AVALOX [Suspect]
     Indication: ATYPICAL PNEUMONIA
     Dosage: 1 PILL, THREE TIMES DAILY, TAKEN BY MOUTH?2 DAYS
     Route: 048

REACTIONS (2)
  - Hallucination [None]
  - Tremor [None]
